FAERS Safety Report 4387854-2 (Version None)
Quarter: 2004Q2

REPORT INFORMATION
  Report Type: 
  Country: None (occurrence: None)
  Receive Date: 20040630
  Receipt Date: 20040622
  Transmission Date: 20050107
  Serious: Yes (Hospitalization, Congenital Anomaly)
  Sender: FDA-Public Use
  Company Number: PHRM2004FR02200

PATIENT
  Age: 14 Month
  Sex: Male
  Weight: 7 kg

DRUGS (1)
  1. COTAREG [Suspect]
     Route: 064

REACTIONS (4)
  - DRUG EXPOSURE DURING PREGNANCY [None]
  - PULMONARY MALFORMATION [None]
  - RENAL FAILURE CHRONIC [None]
  - SKULL MALFORMATION [None]
